FAERS Safety Report 10256016 (Version 6)
Quarter: 2015Q3

REPORT INFORMATION
  Report Type: Report from Study
  Country: JP (occurrence: JP)
  Receive Date: 20140624
  Receipt Date: 20150810
  Transmission Date: 20151125
  Serious: Yes (Other)
  Sender: FDA-Public Use
  Company Number: PHHY2014JP003839

PATIENT
  Age: 1 Year
  Sex: Female
  Weight: 7 kg

DRUGS (9)
  1. ACZ885 [Suspect]
     Active Substance: CANAKINUMAB
     Dosage: 16 MG, UNK
     Route: 058
     Dates: start: 20130829
  2. ACZ885 [Suspect]
     Active Substance: CANAKINUMAB
     Dosage: 20 MG, UNK
     Route: 058
     Dates: start: 20140306
  3. ACZ885 [Suspect]
     Active Substance: CANAKINUMAB
     Dosage: 2 MG/KG, UNK
     Route: 058
  4. ACZ885 [Suspect]
     Active Substance: CANAKINUMAB
     Indication: CHRONIC INFANTILE NEUROLOGICAL CUTANEOUS AND ARTICULAR SYNDROME
     Dosage: 13 MG, QD
     Route: 058
     Dates: start: 20130507
  5. ACZ885 [Suspect]
     Active Substance: CANAKINUMAB
     Dosage: 18 MG, UNK
     Route: 058
     Dates: start: 20131031
  6. ACZ885 [Suspect]
     Active Substance: CANAKINUMAB
     Indication: CRYOPYRIN ASSOCIATED PERIODIC SYNDROME
     Dosage: 15 MG, UNK
     Route: 058
     Dates: start: 20130704
  7. ACZ885 [Suspect]
     Active Substance: CANAKINUMAB
     Dosage: 2 MG/KG, UNK
     Route: 058
  8. ACZ885 [Suspect]
     Active Substance: CANAKINUMAB
     Dosage: 6 MG/KG, UNK
     Route: 058
  9. ACZ885 [Suspect]
     Active Substance: CANAKINUMAB
     Dosage: 20 MG, UNK
     Route: 058
     Dates: start: 20140106

REACTIONS (14)
  - Knee deformity [Not Recovered/Not Resolved]
  - Product use issue [Unknown]
  - Inflammation [Unknown]
  - CSF pressure increased [Unknown]
  - Gastroenteritis [Recovering/Resolving]
  - Nasopharyngitis [Unknown]
  - C-reactive protein increased [Unknown]
  - Pyrexia [Unknown]
  - Pharyngitis [Recovering/Resolving]
  - Drug effect incomplete [Unknown]
  - Hepatic enzyme increased [Recovering/Resolving]
  - Arthropathy [Not Recovered/Not Resolved]
  - Conjunctivitis [Recovering/Resolving]
  - CSF cell count increased [Unknown]

NARRATIVE: CASE EVENT DATE: 20131119
